FAERS Safety Report 6919507-8 (Version None)
Quarter: 2010Q3

REPORT INFORMATION
  Report Type: 
  Country: None (occurrence: None)
  Receive Date: 20100811
  Receipt Date: 20100802
  Transmission Date: 20110219
  Serious: Yes (Other)
  Sender: FDA-Public Use
  Company Number: IT-CELGENEUS-083-C5013-10061696

PATIENT
  Sex: Male
  Weight: 91.3 kg

DRUGS (7)
  1. THALIDOMIDE [Suspect]
     Indication: MULTIPLE MYELOMA
     Route: 048
     Dates: start: 20100519, end: 20100603
  2. THALIDOMIDE [Suspect]
     Route: 048
     Dates: start: 20100603, end: 20100606
  3. THALIDOMIDE [Suspect]
     Route: 048
     Dates: start: 20100707
  4. MELPHALAN [Suspect]
     Indication: MULTIPLE MYELOMA
     Route: 065
     Dates: start: 20100519, end: 20100522
  5. PREDNISONE [Suspect]
     Indication: MULTIPLE MYELOMA
     Route: 065
     Dates: start: 20100519, end: 20100522
  6. LANSOPRAZOLE [Concomitant]
     Indication: PROPHYLAXIS
     Route: 048
  7. MODURETIC 5-50 [Concomitant]
     Indication: DIURETIC THERAPY
     Route: 048

REACTIONS (1)
  - PRESYNCOPE [None]
